FAERS Safety Report 6474155-1 (Version None)
Quarter: 2009Q4

REPORT INFORMATION
  Report Type: 
  Country: None (occurrence: None)
  Receive Date: 20091204
  Receipt Date: 20091201
  Transmission Date: 20100525
  Serious: Yes (Death, Other)
  Sender: FDA-Public Use
  Company Number: IT-BRISTOL-MYERS SQUIBB COMPANY-14814446

PATIENT
  Age: 86 Year
  Sex: Female

DRUGS (6)
  1. COUMADIN [Suspect]
     Indication: PULMONARY EMBOLISM
     Route: 048
     Dates: start: 20090301, end: 20090917
  2. COUMADIN [Suspect]
     Indication: PULMONARY INFARCTION
     Route: 048
     Dates: start: 20090301, end: 20090917
  3. ENALAPRIL MALEATE [Concomitant]
     Route: 048
  4. ESOMEPRAZOLE MAGNESIUM TRIHYDRATE [Concomitant]
  5. AMLODIPINE BESYLATE [Concomitant]
  6. ZOLPIDEM [Concomitant]

REACTIONS (2)
  - CEREBRAL ISCHAEMIA [None]
  - INTERNATIONAL NORMALISED RATIO INCREASED [None]
